FAERS Safety Report 9248224 (Version 3)
Quarter: 2014Q1

REPORT INFORMATION
  Report Type: Spontaneous
  Country: RO (occurrence: RO)
  Receive Date: 20130423
  Receipt Date: 20140218
  Transmission Date: 20141002
  Serious: Yes (Hospitalization)
  Sender: FDA-Public Use
  Company Number: RO-UCBSA-083488

PATIENT
  Age: 33 Year
  Sex: Female
  Weight: 68 kg

DRUGS (2)
  1. VIMPAT [Suspect]
     Indication: EPILEPSY
     Route: 048
     Dates: start: 20121027
  2. VALPROIC ACID [Concomitant]
     Dosage: DOSE PER INTAKE:150 MG
     Dates: start: 201105

REACTIONS (2)
  - Uterine polyp [Recovered/Resolved]
  - Metrorrhagia [Not Recovered/Not Resolved]
